FAERS Safety Report 8968815 (Version 1)
Quarter: 2012Q4

REPORT INFORMATION
  Report Type: 
  Country: US (occurrence: US)
  Receive Date: 20121218
  Receipt Date: 20121218
  Transmission Date: 20130627
  Serious: Yes (Other)
  Sender: FDA-Public Use
  Company Number: US-BRISTOL-MYERS SQUIBB COMPANY-16358715

PATIENT
  Age: 31 Year
  Sex: Male
  Weight: 72.56 kg

DRUGS (4)
  1. ABILIFY [Suspect]
     Indication: DEPRESSION
     Dosage: 1 tablets
  2. LEXAPRO [Concomitant]
  3. KLONOPIN [Concomitant]
  4. XANAX [Concomitant]

REACTIONS (9)
  - Suicidal ideation [Unknown]
  - Homicidal ideation [Unknown]
  - Depression [Unknown]
  - Blood glucose increased [Unknown]
  - Glycosylated haemoglobin increased [Unknown]
  - Weight decreased [Unknown]
  - Anger [Unknown]
  - Irritability [Unknown]
  - Agitation [Unknown]
